FAERS Safety Report 12136038 (Version 1)
Quarter: 2016Q1

REPORT INFORMATION
  Report Type: Report from Study
  Country: US (occurrence: US)
  Receive Date: 20160302
  Receipt Date: 20160302
  Transmission Date: 20160526
  Serious: Yes (Other)
  Sender: FDA-Public Use
  Company Number: US-ROCHE-1718508

PATIENT
  Sex: Female
  Weight: 78.09 kg

DRUGS (11)
  1. CYCLOSPORINE. [Concomitant]
     Active Substance: CYCLOSPORINE
     Dosage: DISCONTINUED
     Route: 065
     Dates: end: 201502
  2. CETRIZINE [Concomitant]
     Active Substance: CETIRIZINE HYDROCHLORIDE
     Indication: URTICARIA
     Route: 065
  3. ADDERALL [Concomitant]
     Active Substance: AMPHETAMINE ASPARTATE\AMPHETAMINE SULFATE\DEXTROAMPHETAMINE SACCHARATE\DEXTROAMPHETAMINE SULFATE
     Route: 065
  4. ALBUTEROL. [Concomitant]
     Active Substance: ALBUTEROL
     Dosage: 2-4 PUFF, ONCE 4-6 HOURS
     Route: 065
  5. EPIPEN [Concomitant]
     Active Substance: EPINEPHRINE
     Indication: ANAPHYLACTIC REACTION
     Dosage: 0.3 MG/0.3 ML
     Route: 065
  6. XOLAIR [Suspect]
     Active Substance: OMALIZUMAB
     Indication: IDIOPATHIC URTICARIA
     Dosage: IN THE RIGHT UPPER ARM
     Route: 058
  7. PREDNISONE. [Concomitant]
     Active Substance: PREDNISONE
     Dosage: 2 TABLS ONCE DAILY IN AM WITH FOOD FOR 5 DAYS
     Route: 048
  8. SULFASALAZINE. [Concomitant]
     Active Substance: SULFASALAZINE
     Dosage: DISCONTINUED
     Route: 065
     Dates: end: 201502
  9. PREDNISONE. [Concomitant]
     Active Substance: PREDNISONE
     Dosage: 1 TAB ONCE DAILY FOR 5 DAYS THEN OFF
     Route: 065
  10. ZYRTEC [Concomitant]
     Active Substance: CETIRIZINE HYDROCHLORIDE
     Dosage: AT NIGHT
     Route: 065
  11. QVAR [Concomitant]
     Active Substance: BECLOMETHASONE DIPROPIONATE
     Dosage: 2 PUFF?FOR 2-4 WEEKS
     Route: 065

REACTIONS (5)
  - Urticaria [Unknown]
  - Viral upper respiratory tract infection [Unknown]
  - Anaphylactic reaction [Unknown]
  - Fatigue [Unknown]
  - Arthralgia [Unknown]
